FAERS Safety Report 23062567 (Version 1)
Quarter: 2023Q4

REPORT INFORMATION
  Report Type: Spontaneous
  Country: KR (occurrence: None)
  Receive Date: 20231013
  Receipt Date: 20231013
  Transmission Date: 20240110
  Serious: Yes (Hospitalization)
  Sender: FDA-Public Use
  Company Number: KR-Orion Corporation ORION PHARMA-ENTC2023-0175

PATIENT
  Age: 78 Year
  Sex: Female

DRUGS (1)
  1. STALEVO [Suspect]
     Active Substance: CARBIDOPA\ENTACAPONE\LEVODOPA
     Indication: Product used for unknown indication

REACTIONS (9)
  - Overdose [Unknown]
  - Dementia [Recovering/Resolving]
  - Delusion [Recovering/Resolving]
  - Paranoia [Recovering/Resolving]
  - Stress [Recovering/Resolving]
  - Wrong technique in product usage process [Unknown]
  - Product complaint [Unknown]
  - Product size issue [Unknown]
  - Product communication issue [Unknown]
